FAERS Safety Report 6517387-6 (Version None)
Quarter: 2009Q4

REPORT INFORMATION
  Report Type: 
  Country: None (occurrence: None)
  Receive Date: 20091218
  Receipt Date: 20091208
  Transmission Date: 20100525
  Serious: Yes (Hospitalization)
  Sender: FDA-Public Use
  Company Number: 233961J09USA

PATIENT
  Age: 36 Year
  Sex: Male

DRUGS (3)
  1. REBIF [Suspect]
     Indication: MULTIPLE SCLEROSIS
     Dosage: 44 MCG, 3 IN 1 WEEKS, SUBCUTANEOUS
     Route: 058
     Dates: start: 20090608
  2. HYDROCODONE (HYDROCODONE) [Concomitant]
  3. DIAZEPAM [Concomitant]

REACTIONS (7)
  - BACK INJURY [None]
  - BACK PAIN [None]
  - FIBROMYALGIA [None]
  - HYPOAESTHESIA [None]
  - INTERVERTEBRAL DISC PROTRUSION [None]
  - MULTIPLE SCLEROSIS RELAPSE [None]
  - VIRAL INFECTION [None]
